FAERS Safety Report 9478042 (Version 2)
Quarter: 2013Q3

REPORT INFORMATION
  Report Type: Report from Study
  Country: AU (occurrence: AU)
  Receive Date: 20130827
  Receipt Date: 20130827
  Transmission Date: 20140515
  Serious: Yes (Life-Threatening, Hospitalization, Other)
  Sender: FDA-Public Use
  Company Number: PHHY2013AU071217

PATIENT
  Age: 49 Year
  Sex: Female
  Weight: 74 kg

DRUGS (4)
  1. CLOZARIL [Suspect]
     Indication: SCHIZOAFFECTIVE DISORDER
     Dosage: 12.5 MG, UNK
     Route: 048
  2. CLOZARIL [Suspect]
     Dosage: 200 MG PER DAY
     Route: 048
     Dates: start: 20130627
  3. ANTIPSYCHOTICS [Concomitant]
     Dosage: UNK UKN, UNK
  4. TRICYCLIC ANTIDEPRESSANTS [Concomitant]
     Dosage: UNK UKN, UNK

REACTIONS (16)
  - Myocarditis [Recovered/Resolved with Sequelae]
  - N-terminal prohormone brain natriuretic peptide increased [Unknown]
  - C-reactive protein increased [Recovered/Resolved]
  - Troponin increased [Recovered/Resolved]
  - Fatigue [Unknown]
  - Malaise [Unknown]
  - Tachycardia [Unknown]
  - Tachyarrhythmia [Unknown]
  - Decreased appetite [Unknown]
  - Abdominal discomfort [Unknown]
  - Electrocardiogram QT prolonged [Recovered/Resolved]
  - Respiratory disorder [Recovered/Resolved]
  - Sneezing [Recovered/Resolved]
  - Pyrexia [Recovered/Resolved]
  - Oropharyngeal pain [Recovered/Resolved]
  - Dizziness [Unknown]
